FAERS Safety Report 25372400 (Version 2)
Quarter: 2025Q2

REPORT INFORMATION
  Report Type: Spontaneous
  Country: SE (occurrence: SE)
  Receive Date: 20250529
  Receipt Date: 20250530
  Transmission Date: 20250717
  Serious: Yes (Death, Other)
  Sender: ALEXION PHARMACEUTICALS
  Company Number: SE-ASTRAZENECA-202505EEA022440SE

PATIENT
  Age: 68 Year

DRUGS (1)
  1. IMFINZI [Suspect]
     Active Substance: DURVALUMAB
     Route: 065

REACTIONS (4)
  - Pneumonitis [Fatal]
  - Myocarditis [Fatal]
  - Respiratory failure [Fatal]
  - Renal failure [Fatal]
